FAERS Safety Report 9306523 (Version 1)
Quarter: 2013Q2

REPORT INFORMATION
  Report Type: Spontaneous
  Country: FR (occurrence: FR)
  Receive Date: 20130523
  Receipt Date: 20130523
  Transmission Date: 20140414
  Serious: Yes (Life-Threatening, Other)
  Sender: FDA-Public Use
  Company Number: FR-ABBOTT-13P-056-1092819-00

PATIENT
  Age: 55 Year
  Sex: Male
  Weight: 83 kg

DRUGS (3)
  1. HUMIRA [Suspect]
     Indication: RHEUMATOID ARTHRITIS
     Dates: start: 20120908, end: 20130427
  2. IMETH [Suspect]
     Indication: RHEUMATOID ARTHRITIS
     Route: 048
     Dates: start: 20130228, end: 20130504
  3. METOJECT [Suspect]
     Indication: RHEUMATOID ARTHRITIS
     Route: 058
     Dates: start: 20120425, end: 20130221

REACTIONS (6)
  - Jaundice [Recovering/Resolving]
  - Hepatic neoplasm [Unknown]
  - Abdominal pain [Recovering/Resolving]
  - Cholelithiasis [Recovering/Resolving]
  - Metastases to liver [Unknown]
  - Rheumatoid arthritis [Unknown]
